FAERS Safety Report 19131486 (Version 3)
Quarter: 2021Q3

REPORT INFORMATION
  Report Type: Report from Study
  Country: FR (occurrence: FR)
  Receive Date: 20210414
  Receipt Date: 20210701
  Transmission Date: 20211014
  Serious: Yes (Death, Hospitalization)
  Sender: FDA-Public Use
  Company Number: FR-ROCHE-2804994

PATIENT
  Age: 76 Year
  Sex: Female
  Weight: 53 kg

DRUGS (11)
  1. CYTARABINE. [Concomitant]
     Active Substance: CYTARABINE
     Dates: start: 20190619, end: 20191016
  2. DOXORUBICIN [Concomitant]
     Active Substance: DOXORUBICIN
     Dates: start: 20190619, end: 20191016
  3. PREDNISONE. [Concomitant]
     Active Substance: PREDNISONE
     Dates: start: 20190619, end: 20191016
  4. VALACYCLOVIR [Concomitant]
     Active Substance: VALACYCLOVIR HYDROCHLORIDE
     Dates: start: 20190620
  5. VINCRISTINE [Concomitant]
     Active Substance: VINCRISTINE
     Dates: start: 20190619, end: 20191016
  6. CYCLOPHOSPHAMIDE. [Concomitant]
     Active Substance: CYCLOPHOSPHAMIDE
     Dates: start: 20190619, end: 20191016
  7. RITUXIMAB. [Suspect]
     Active Substance: RITUXIMAB
     Indication: MANTLE CELL LYMPHOMA
     Dosage: ON 04/FEB/2021, LAST DOSE OF RITUXIMAB WAS ADMINISTERED BEFORE SAE ONSET.?EVERY 8 WEEKS FOR 24 MONTH
     Route: 058
     Dates: start: 20200106, end: 20210326
  8. LENALIDOMIDE [Suspect]
     Active Substance: LENALIDOMIDE
     Indication: MANTLE CELL LYMPHOMA
     Dosage: ON 25/MAR/2021, RECEIVED LAST DOSE OF LENALIDOMIDE WAS ADMINISTERED.?3 WEEKS EVERY 4 WEEKS FOR 24 MO
     Route: 065
     Dates: start: 20200107, end: 20210326
  9. RITUXIMAB. [Concomitant]
     Active Substance: RITUXIMAB
     Route: 041
  10. BACTRIM [Concomitant]
     Active Substance: SULFAMETHOXAZOLE\TRIMETHOPRIM
     Dates: start: 20190620
  11. DEXAMETHASONE. [Concomitant]
     Active Substance: DEXAMETHASONE
     Dates: start: 20190619, end: 20191016

REACTIONS (1)
  - COVID-19 [Fatal]

NARRATIVE: CASE EVENT DATE: 20210322
